FAERS Safety Report 16356944 (Version 1)
Quarter: 2019Q2

REPORT INFORMATION
  Report Type: Spontaneous
  Country: US (occurrence: US)
  Receive Date: 20190527
  Receipt Date: 20190527
  Transmission Date: 20190711
  Serious: No
  Sender: FDA-Public Use
  Company Number: US-APOTEX-2019AP011159

PATIENT
  Age: 4 Year
  Sex: Female

DRUGS (1)
  1. IMATINIB. [Suspect]
     Active Substance: IMATINIB MESYLATE
     Indication: FIBROUS DYSPLASIA OF JAW
     Dosage: 200 MG, QD
     Route: 048

REACTIONS (2)
  - Off label use [Unknown]
  - Nausea [Recovered/Resolved]
